FAERS Safety Report 8378372-5 (Version None)
Quarter: 2012Q2

REPORT INFORMATION
  Report Type: 
  Country: None (occurrence: None)
  Receive Date: 20120521
  Receipt Date: 20120504
  Transmission Date: 20120825
  Serious: No
  Sender: FDA-Public Use
  Company Number: 2012P1023390

PATIENT
  Age: 67 Year
  Sex: Female

DRUGS (2)
  1. BETAMETHASONE [Concomitant]
  2. RANITIDINE HCL [Suspect]
     Dosage: 2 MG; X1; IV
     Route: 042
     Dates: start: 20120315

REACTIONS (1)
  - ANAPHYLACTIC SHOCK [None]
